FAERS Safety Report 10097158 (Version 2)
Quarter: 2014Q2

REPORT INFORMATION
  Report Type: Spontaneous
  Country: JP (occurrence: JP)
  Receive Date: 20140422
  Receipt Date: 20140422
  Transmission Date: 20141212
  Serious: No
  Sender: FDA-Public Use
  Company Number: JP-SUCAMPO PHARMA AMERICAS, INC-SPI201400271

PATIENT
  Age: 20 Year
  Sex: Female

DRUGS (2)
  1. AMITIZA [Suspect]
     Indication: CONSTIPATION
     Dosage: 24 MCG, QD
     Route: 048
     Dates: start: 20140410, end: 20140410
  2. BORRAZA-G [Concomitant]
     Indication: ANAL HAEMORRHAGE
     Dosage: 240 MG, BID
     Route: 054
     Dates: start: 20140410

REACTIONS (2)
  - Dyspnoea [Recovered/Resolved]
  - Hyperventilation [Recovered/Resolved]
